FAERS Safety Report 4642957-X (Version None)
Quarter: 2005Q2

REPORT INFORMATION
  Report Type: 
  Country: None (occurrence: None)
  Receive Date: 20050421
  Receipt Date: 20050217
  Transmission Date: 20051028
  Serious: Yes (Other)
  Sender: FDA-Public Use
  Company Number: 2005018856

PATIENT
  Age: 40 Year
  Sex: Female
  Weight: 51 kg

DRUGS (4)
  1. ZOLOFT [Suspect]
     Indication: PREMENSTRUAL SYNDROME
     Dosage: 25 MG (1 IN 1 D), ORAL
     Route: 048
  2. FAMCICLOVIR (FAMCICLOVIR) [Concomitant]
  3. GABAPENTIN [Concomitant]
  4. CEPHALEXIN MONOHYDRATE [Concomitant]

REACTIONS (1)
  - BREAST MASS [None]
